FAERS Safety Report 12855409 (Version 6)
Quarter: 2017Q2

REPORT INFORMATION
  Report Type: Report from Study
  Country: US (occurrence: US)
  Receive Date: 20161017
  Receipt Date: 20170511
  Transmission Date: 20170830
  Serious: Yes (Death, Hospitalization)
  Sender: FDA-Public Use
  Company Number: US-ACTELION-A-NJ2016-143763

PATIENT
  Age: 62 Year
  Sex: Female

DRUGS (5)
  1. REMODULIN [Concomitant]
     Active Substance: TREPROSTINIL
     Dosage: 24 NG/KG, PER MIN
     Route: 058
     Dates: end: 20170310
  2. REMODULIN [Concomitant]
     Active Substance: TREPROSTINIL
     Dosage: 26 NG/KG, PER MIN
     Route: 042
     Dates: start: 20160628
  3. REMODULIN [Concomitant]
     Active Substance: TREPROSTINIL
     Dosage: 15 NG/KG, PER MIN
     Route: 058
     Dates: start: 200908
  4. REMODULIN [Concomitant]
     Active Substance: TREPROSTINIL
     Dosage: 17 NG/KG, PER MIN
     Dates: start: 20160628, end: 20170310
  5. TRACLEER [Suspect]
     Active Substance: BOSENTAN
     Indication: PULMONARY ARTERIAL HYPERTENSION
     Dosage: 125 MG, BID
     Route: 048
     Dates: start: 2008, end: 20170310

REACTIONS (12)
  - Pulmonary arterial hypertension [Fatal]
  - Dyspnoea [Recovered/Resolved]
  - Pulmonary vascular resistance abnormality [Unknown]
  - Chest discomfort [Recovered/Resolved]
  - Anxiety [Unknown]
  - Wheezing [Recovered/Resolved]
  - Respiratory failure [Fatal]
  - Right ventricular failure [Unknown]
  - Cough [Unknown]
  - Disease complication [Fatal]
  - Asthma [Recovered/Resolved]
  - Fatigue [Recovered/Resolved]

NARRATIVE: CASE EVENT DATE: 20161001
